FAERS Safety Report 4626935-2 (Version None)
Quarter: 2005Q2

REPORT INFORMATION
  Report Type: 
  Country: None (occurrence: None)
  Receive Date: 20050405
  Receipt Date: 20050323
  Transmission Date: 20051028
  Serious: Yes (Hospitalization)
  Sender: FDA-Public Use
  Company Number: DK-MERCK-0504DNK00001

PATIENT
  Age: 60 Year
  Sex: Male

DRUGS (6)
  1. VIOXX [Suspect]
     Indication: ARTHRITIS
     Route: 048
     Dates: start: 20000101, end: 20010101
  2. VIOXX [Suspect]
     Route: 048
     Dates: start: 20010101, end: 20031201
  3. VIOXX [Suspect]
     Indication: PSORIASIS
     Route: 048
     Dates: start: 20000101, end: 20010101
  4. VIOXX [Suspect]
     Route: 048
     Dates: start: 20010101, end: 20031201
  5. GLIMEPIRIDE [Concomitant]
     Indication: DIABETES MELLITUS NON-INSULIN-DEPENDENT
     Route: 048
     Dates: start: 20010601
  6. SULFASALAZINE [Concomitant]
     Route: 048

REACTIONS (1)
  - BRAIN STEM INFARCTION [None]
